FAERS Safety Report 8246580-X (Version None)
Quarter: 2012Q1

REPORT INFORMATION
  Report Type: 
  Country: None (occurrence: None)
  Receive Date: 20120330
  Receipt Date: 20120327
  Transmission Date: 20120608
  Serious: Yes (Other)
  Sender: FDA-Public Use
  Company Number: PHHY2012BR027038

PATIENT
  Sex: Female

DRUGS (2)
  1. RITALIN LA [Suspect]
     Dosage: UNK UKN, UNK
  2. RITALIN LA [Suspect]
     Dosage: 1 DF, ONE TABLET
     Dates: start: 20120322

REACTIONS (4)
  - ASTHMA [None]
  - MALAISE [None]
  - FATIGUE [None]
  - VOMITING [None]
